FAERS Safety Report 9280314 (Version 2)
Quarter: 2013Q2

REPORT INFORMATION
  Report Type: Report from Study
  Country: US (occurrence: US)
  Receive Date: 20130509
  Receipt Date: 20130626
  Transmission Date: 20140414
  Serious: Yes (Hospitalization)
  Sender: FDA-Public Use
  Company Number: US-ELI_LILLY_AND_COMPANY-US201303003441

PATIENT
  Age: 54 Year
  Sex: Female

DRUGS (1)
  1. TERIPARATIDE [Suspect]
     Dosage: UNK, UNKNOWN

REACTIONS (2)
  - Pleural effusion [Recovered/Resolved]
  - Hypoxia [Recovering/Resolving]
